FAERS Safety Report 10564985 (Version 3)
Quarter: 2016Q2

REPORT INFORMATION
  Report Type: Spontaneous
  Country: BR (occurrence: BR)
  Receive Date: 20141105
  Receipt Date: 20160520
  Transmission Date: 20160815
  Serious: Yes (Other)
  Sender: FDA-Public Use
  Company Number: BR-009507513-1309BRA008343

PATIENT
  Age: 43 Year
  Sex: Female
  Weight: 45 kg

DRUGS (4)
  1. PURAN [Concomitant]
     Active Substance: LEVOTHYROXINE SODIUM
     Indication: HYPOTHYROIDISM
     Dosage: UNK, QD
     Dates: end: 201302
  2. SYNTHROID [Concomitant]
     Active Substance: LEVOTHYROXINE SODIUM
     Indication: HYPOTHYROIDISM
     Dosage: 125 MICROGRAM, QAM
     Dates: start: 1989
  3. MERCILON [Suspect]
     Active Substance: DESOGESTREL\ETHINYL ESTRADIOL
     Indication: CONTRACEPTION
     Dosage: UNK, QD
     Route: 048
     Dates: end: 1997
  4. MERCILON [Suspect]
     Active Substance: DESOGESTREL\ETHINYL ESTRADIOL
     Dosage: UNK, QD
     Route: 048
     Dates: start: 20130915

REACTIONS (19)
  - Vaginal discharge [Recovered/Resolved]
  - Menstrual disorder [Not Recovered/Not Resolved]
  - Acne [Recovered/Resolved]
  - Caesarean section [Recovered/Resolved]
  - Hyperthyroidism [Not Recovered/Not Resolved]
  - Maternal exposure before pregnancy [Unknown]
  - Gestational hypertension [Recovered/Resolved]
  - Dysmenorrhoea [Recovered/Resolved]
  - Headache [Recovered/Resolved]
  - Influenza [Recovered/Resolved]
  - Withdrawal bleed [Unknown]
  - Vulvovaginal pruritus [Recovered/Resolved]
  - Sinusitis [Not Recovered/Not Resolved]
  - Influenza [Not Recovered/Not Resolved]
  - Amenorrhoea [Recovered/Resolved]
  - Abdominal distension [Unknown]
  - Breast pain [Recovered/Resolved]
  - Metrorrhagia [Recovered/Resolved]
  - Metrorrhagia [Unknown]

NARRATIVE: CASE EVENT DATE: 2013
